FAERS Safety Report 16065658 (Version 1)
Quarter: 2019Q1

REPORT INFORMATION
  Report Type: Spontaneous
  Country: ES (occurrence: ES)
  Receive Date: 20190313
  Receipt Date: 20190313
  Transmission Date: 20190418
  Serious: Yes (Other)
  Sender: FDA-Public Use
  Company Number: ES-AUROBINDO-AUR-APL-2019-012437

PATIENT

DRUGS (6)
  1. FUROSEMIDE. [Interacting]
     Active Substance: FUROSEMIDE
     Indication: OEDEMA
     Dosage: 3 MILLIGRAM, EVERY FOUR HOUR
     Route: 042
     Dates: start: 20170710
  2. AMLODIPINE [Suspect]
     Active Substance: AMLODIPINE BESYLATE
     Indication: HYPERTENSION
     Dosage: 1 MILLIGRAM, TWO TIMES A DAY
     Route: 048
     Dates: start: 20170703
  3. ENALAPRIL [Interacting]
     Active Substance: ENALAPRIL
     Indication: HYPERTENSION
     Dosage: 1 MILLIGRAM, DAILY
     Route: 048
     Dates: start: 20170711, end: 20170714
  4. SPIRONOLACTONE. [Interacting]
     Active Substance: SPIRONOLACTONE
     Indication: HYPERTENSION
     Dosage: 10 MILLIGRAM, TWO TIMES A DAY
     Route: 048
     Dates: start: 20170704
  5. VANCOMYCIN [Interacting]
     Active Substance: VANCOMYCIN
     Indication: INFECTION
     Dosage: 70 MILLIGRAM, 3 TIMES A DAY
     Route: 042
     Dates: start: 20170704, end: 20170711
  6. FOSCARNET SODIUM. [Interacting]
     Active Substance: FOSCARNET SODIUM
     Indication: CYTOMEGALOVIRUS INFECTION
     Dosage: 300 MILLIGRAM, 3 TIMES A DAY
     Route: 042
     Dates: start: 20170710, end: 20170713

REACTIONS (1)
  - Acute kidney injury [Recovered/Resolved]

NARRATIVE: CASE EVENT DATE: 20170712
